FAERS Safety Report 22231403 (Version 2)
Quarter: 2023Q2

REPORT INFORMATION
  Report Type: Spontaneous
  Country: TH (occurrence: TH)
  Receive Date: 20230420
  Receipt Date: 20230422
  Transmission Date: 20230722
  Serious: Yes (Life-Threatening, Hospitalization, Other)
  Sender: FDA-Public Use
  Company Number: TH-MLMSERVICE-20230403-4201032-1

PATIENT
  Age: 51 Year
  Sex: Male

DRUGS (4)
  1. TACROLIMUS [Suspect]
     Active Substance: TACROLIMUS
     Indication: Immunosuppressant drug therapy
  2. SIROLIMUS [Suspect]
     Active Substance: SIROLIMUS
     Indication: Immunosuppressant drug therapy
  3. PREDNISONE [Suspect]
     Active Substance: PREDNISONE
     Indication: Immunosuppressant drug therapy
  4. SULFAMETHOXAZOLE\TRIMETHOPRIM [Concomitant]
     Active Substance: SULFAMETHOXAZOLE\TRIMETHOPRIM
     Indication: Prophylaxis

REACTIONS (13)
  - Chronic kidney disease [Unknown]
  - Toxicity to various agents [Unknown]
  - Septic shock [Unknown]
  - Acute kidney injury [Unknown]
  - Polyomavirus-associated nephropathy [Recovering/Resolving]
  - Arteriosclerosis [Unknown]
  - Pneumonia cytomegaloviral [Unknown]
  - Acute respiratory failure [Unknown]
  - Ischaemic stroke [Unknown]
  - Cerebellar stroke [Unknown]
  - Enterococcal infection [Unknown]
  - Cytomegalovirus viraemia [Unknown]
  - Abdominal infection [Unknown]
